FAERS Safety Report 8318530-9 (Version None)
Quarter: 2012Q2

REPORT INFORMATION
  Report Type: 
  Country: None (occurrence: None)
  Receive Date: 20120427
  Receipt Date: 20120419
  Transmission Date: 20120825
  Serious: Yes (Other)
  Sender: FDA-Public Use
  Company Number: RU-GLAXOSMITHKLINE-B0797733A

PATIENT
  Age: 62 Year
  Sex: Female

DRUGS (3)
  1. CHEMOTHERAPY [Concomitant]
  2. VINBLASTINE SULFATE [Concomitant]
     Route: 042
     Dates: start: 20120301
  3. PAXIL [Suspect]
     Indication: PRODUCT USED FOR UNKNOWN INDICATION
     Dosage: 20MG PER DAY
     Route: 048
     Dates: start: 20120301

REACTIONS (6)
  - DRY MOUTH [None]
  - HEADACHE [None]
  - LEUKOPENIA [None]
  - DIARRHOEA [None]
  - DIZZINESS [None]
  - NIGHT SWEATS [None]
